FAERS Safety Report 23702763 (Version 3)
Quarter: 2024Q2

REPORT INFORMATION
  Report Type: Report from Study
  Country: US (occurrence: US)
  Receive Date: 20240403
  Receipt Date: 20240510
  Transmission Date: 20240716
  Serious: Yes (Other)
  Sender: FDA-Public Use
  Company Number: US-MYLANLABS-2024M1029663

PATIENT
  Sex: Male
  Weight: 83.91 kg

DRUGS (3)
  1. ZOLOFT [Suspect]
     Active Substance: SERTRALINE HYDROCHLORIDE
     Indication: Depression
     Dosage: 50 MILLIGRAM
     Route: 065
     Dates: start: 20230501
  2. ZOLOFT [Suspect]
     Active Substance: SERTRALINE HYDROCHLORIDE
     Dosage: 200 MILLIGRAM
     Route: 065
     Dates: start: 202305
  3. PAXIL [Concomitant]
     Active Substance: PAROXETINE HYDROCHLORIDE
     Indication: Depression
     Dosage: UNK
     Route: 065

REACTIONS (17)
  - Brain injury [Unknown]
  - Tardive dyskinesia [Unknown]
  - Erectile dysfunction [Unknown]
  - Atrial fibrillation [Unknown]
  - Oral pain [Unknown]
  - Teething [Unknown]
  - Negative thoughts [Unknown]
  - Facial pain [Unknown]
  - Quality of life decreased [Unknown]
  - Feeling abnormal [Unknown]
  - Fall [Unknown]
  - Bruxism [Unknown]
  - Anxiety [Unknown]
  - Hypoaesthesia [Unknown]
  - Diarrhoea [Unknown]
  - Tremor [Unknown]
  - Blood pressure increased [Unknown]
